FAERS Safety Report 9092952 (Version 1)
Quarter: 2013Q1

REPORT INFORMATION
  Report Type: Spontaneous
  Country: US (occurrence: US)
  Receive Date: 20130201
  Receipt Date: 20130201
  Transmission Date: 20140127
  Serious: Yes (Other)
  Sender: FDA-Public Use
  Company Number: US-PFIZER INC-2013040654

PATIENT
  Sex: Female

DRUGS (1)
  1. TIKOSYN [Suspect]
     Indication: CARDIOVERSION
     Dosage: UNK

REACTIONS (4)
  - Arrhythmia [Unknown]
  - Dry skin [Unknown]
  - Sleep disorder [Unknown]
  - Memory impairment [Unknown]
